FAERS Safety Report 5389190-4 (Version None)
Quarter: 2007Q3

REPORT INFORMATION
  Report Type: 
  Country: None (occurrence: None)
  Receive Date: 20070713
  Receipt Date: 20070710
  Transmission Date: 20080115
  Serious: Yes (Hospitalization)
  Sender: FDA-Public Use
  Company Number: 48998

PATIENT
  Age: 28 Year
  Sex: Female
  Weight: 64.8644 kg

DRUGS (1)
  1. NICOTINE POLACRIFLEX GUM/2 MG/PERRIGO COMPANY [Suspect]
     Indication: SMOKING CESSATION THERAPY
     Dosage: 2MG/4-5 DAILY/ORAL
     Route: 048
     Dates: start: 20070622, end: 20070702

REACTIONS (5)
  - DEHYDRATION [None]
  - DIARRHOEA [None]
  - DYSGEUSIA [None]
  - GASTRITIS [None]
  - MUSCLE SPASMS [None]
